FAERS Safety Report 14425991 (Version 1)
Quarter: 2018Q1

REPORT INFORMATION
  Report Type: Spontaneous
  Country: US (occurrence: US)
  Receive Date: 20180123
  Receipt Date: 20180123
  Transmission Date: 20180509
  Serious: No
  Sender: FDA-Public Use
  Company Number: US-SIGMAPHARM LABORATORIES, LLC-2017SIG00002

PATIENT
  Age: 62 Year
  Sex: Female
  Weight: 56.69 kg

DRUGS (2)
  1. LIOTHYRONINE SODIUM. [Suspect]
     Active Substance: LIOTHYRONINE SODIUM
     Indication: HYPOTHYROIDISM
     Dosage: 25 MCG, 2X/DAY
     Route: 048
     Dates: start: 20161027, end: 20170106
  2. LIOTHYRONINE SODIUM. [Suspect]
     Active Substance: LIOTHYRONINE SODIUM
     Dosage: 12.5 MCG, UNK
     Route: 048
     Dates: start: 20170109, end: 20170109

REACTIONS (5)
  - Alopecia [Not Recovered/Not Resolved]
  - Overdose [Unknown]
  - Hyperthyroidism [Recovering/Resolving]
  - Blood pressure decreased [Recovered/Resolved]
  - Blood pressure fluctuation [Unknown]

NARRATIVE: CASE EVENT DATE: 20161210
